FAERS Safety Report 10398224 (Version 1)
Quarter: 2014Q1

REPORT INFORMATION
  Report Type: Spontaneous
  Country: US (occurrence: None)
  Receive Date: 20130703
  Receipt Date: 20130703
  Transmission Date: 20141002
  Serious: No
  Sender: FDA-Public Use
  Company Number: 036783

PATIENT
  Age: 19 Year
  Sex: Female
  Weight: 69.8 kg

DRUGS (5)
  1. LORTAB [Suspect]
     Indication: PROCEDURAL PAIN
     Dates: start: 201105
  2. VARENICLINE TARTRATE [Suspect]
     Indication: SMOKING CESSATION THERAPY
     Route: 048
     Dates: start: 201103
  3. WELLBUTRIN [Suspect]
     Indication: BIPOLAR DISORDER
     Route: 048
  4. NEURONTIN [Concomitant]
  5. PALIPERIDONE [Concomitant]

REACTIONS (4)
  - Oral infection [None]
  - Abnormal dreams [None]
  - Dizziness [None]
  - Fatigue [None]
